FAERS Safety Report 8507796 (Version 2)
Quarter: 2013Q4

REPORT INFORMATION
  Report Type: Spontaneous
  Country: US (occurrence: US)
  Receive Date: 20120412
  Receipt Date: 20131128
  Transmission Date: 20140711
  Serious: No
  Sender: FDA-Public Use
  Company Number: US-ASTRAZENECA-2011SE75034

PATIENT
  Age: 49 Year
  Sex: Female
  Weight: 106.6 kg

DRUGS (10)
  1. NEXIUM [Suspect]
     Indication: GASTROOESOPHAGEAL REFLUX DISEASE
     Route: 048
     Dates: start: 2010, end: 2012
  2. LASIX [Concomitant]
     Indication: SWELLING
  3. LASIX [Concomitant]
     Indication: BLOOD PRESSURE ABNORMAL
  4. POTASSIUM [Concomitant]
     Indication: SWELLING
  5. POTASSIUM [Concomitant]
     Indication: BLOOD PRESSURE ABNORMAL
  6. VERAPAMIL [Concomitant]
     Indication: CARDIAC DISORDER
     Route: 048
  7. VERAPAMIL [Concomitant]
     Indication: BLOOD PRESSURE
     Route: 048
  8. TUMS [Concomitant]
  9. ROLAIDS [Concomitant]
  10. DOLLAR STORE MEDICATION [Concomitant]

REACTIONS (6)
  - Gastric disorder [Unknown]
  - Gastrointestinal inflammation [Unknown]
  - Visual impairment [Unknown]
  - Abdominal pain upper [Unknown]
  - Off label use [Recovered/Resolved]
  - Drug dose omission [Unknown]
